FAERS Safety Report 18041222 (Version 2)
Quarter: 2020Q4

REPORT INFORMATION
  Report Type: Report from Study
  Country: US (occurrence: US)
  Receive Date: 20200719
  Receipt Date: 20201112
  Transmission Date: 20210113
  Serious: Yes (Death)
  Sender: FDA-Public Use
  Company Number: US-UCBSA-2020028036

PATIENT
  Age: 85 Year
  Sex: Male

DRUGS (1)
  1. LACOSAMIDE. [Suspect]
     Active Substance: LACOSAMIDE
     Indication: EPILEPSY
     Dosage: 20 MILLILITER, 2X/DAY (BID)
     Dates: start: 2018, end: 20200810

REACTIONS (2)
  - Death [Fatal]
  - Productive cough [Not Recovered/Not Resolved]

NARRATIVE: CASE EVENT DATE: 20200710
